FAERS Safety Report 5836705-5 (Version None)
Quarter: 2008Q3

REPORT INFORMATION
  Report Type: 
  Country: None (occurrence: None)
  Receive Date: 20080807
  Receipt Date: 20080731
  Transmission Date: 20090109
  Serious: Yes (Other)
  Sender: FDA-Public Use
  Company Number: GB-TEVA-175246ISR

PATIENT
  Age: 62 Year
  Sex: Female
  Weight: 57.15 kg

DRUGS (1)
  1. ALENDRONIC ACID [Suspect]
     Indication: OSTEOPOROSIS
     Route: 048
     Dates: start: 20080501

REACTIONS (2)
  - ALOPECIA [None]
  - ANXIETY [None]
